FAERS Safety Report 7012255-8 (Version None)
Quarter: 2010Q3

REPORT INFORMATION
  Report Type: 
  Country: None (occurrence: None)
  Receive Date: 20100922
  Receipt Date: 20100922
  Transmission Date: 20110219
  Serious: No
  Sender: FDA-Public Use
  Company Number: None

PATIENT

DRUGS (4)
  1. CELLCEPT [Suspect]
     Indication: SYSTEMIC LUPUS ERYTHEMATOSUS
     Dosage: 500 3 DAY SUMMER 2010
     Dates: start: 20100101
  2. PREDNISONE [Concomitant]
  3. FOSAMAX [Concomitant]
  4. PROPAFENOL [Concomitant]

REACTIONS (2)
  - NAUSEA [None]
  - PRODUCT SUBSTITUTION ISSUE [None]
